FAERS Safety Report 11212273 (Version 2)
Quarter: 2015Q2

REPORT INFORMATION
  Report Type: Spontaneous
  Country: US (occurrence: US)
  Receive Date: 20150623
  Receipt Date: 20150629
  Transmission Date: 20150821
  Serious: Yes (Other)
  Sender: FDA-Public Use
  Company Number: US-PFIZER INC-2015204938

PATIENT
  Age: 50 Year
  Sex: Female
  Weight: 58.96 kg

DRUGS (3)
  1. FEMARA [Concomitant]
     Active Substance: LETROZOLE
     Dosage: 2.5 MG, 1X/DAY (2.5MG TABLET BY MOUTH ONCE A DAY)
     Route: 048
  2. SYNTHROID [Concomitant]
     Active Substance: LEVOTHYROXINE SODIUM
     Dosage: 88 ?G, 1X/DAY (88MCG TABLET BY MOUTH ONCE A DAY)
     Route: 048
  3. IBRANCE [Suspect]
     Active Substance: PALBOCICLIB
     Indication: BREAST CANCER
     Dosage: 100 MG DAILY, CYCLIC, 21 DAYS ON AND 7 DAYS OFF
     Route: 048
     Dates: start: 20150518

REACTIONS (4)
  - White blood cell count decreased [Unknown]
  - Dysgeusia [Unknown]
  - Fatigue [Unknown]
  - Neutropenia [Unknown]

NARRATIVE: CASE EVENT DATE: 20150601
